FAERS Safety Report 8510645-5 (Version None)
Quarter: 2012Q3

REPORT INFORMATION
  Report Type: 
  Country: None (occurrence: None)
  Receive Date: 20120716
  Receipt Date: 20120705
  Transmission Date: 20120928
  Serious: No
  Sender: FDA-Public Use
  Company Number: US-BIOGENIDEC-2012BI024491

PATIENT
  Age: 46 Year
  Sex: Female

DRUGS (3)
  1. AVONEX [Suspect]
     Indication: MULTIPLE SCLEROSIS
     Route: 030
     Dates: start: 19960601, end: 20080111
  2. AVONEX [Suspect]
     Route: 030
     Dates: start: 20080218
  3. AVONEX [Suspect]
     Route: 030
     Dates: start: 20120614

REACTIONS (2)
  - COORDINATION ABNORMAL [None]
  - URTICARIA [None]
